FAERS Safety Report 5590098-X (Version None)
Quarter: 2008Q1

REPORT INFORMATION
  Report Type: 
  Country: None (occurrence: None)
  Receive Date: 20080114
  Receipt Date: 20070621
  Transmission Date: 20080703
  Serious: No
  Sender: FDA-Public Use
  Company Number: US-ABBOTT-07P-163-0372596-00

PATIENT
  Sex: Male

DRUGS (1)
  1. CEFDINIR [Suspect]
     Indication: EAR INFECTION
     Route: 048
     Dates: start: 20070621

REACTIONS (1)
  - DIARRHOEA [None]
